FAERS Safety Report 14106850 (Version 1)
Quarter: 2017Q4

REPORT INFORMATION
  Report Type: Spontaneous
  Country: US (occurrence: US)
  Receive Date: 20171018
  Receipt Date: 20171018
  Transmission Date: 20180321
  Serious: Yes (Other)
  Sender: FDA-Public Use
  Company Number: None

PATIENT
  Age: 10 Year
  Sex: Male
  Weight: 45 kg

DRUGS (3)
  1. MIRALAX [Suspect]
     Active Substance: POLYETHYLENE GLYCOL 3350
     Indication: CONSTIPATION
     Dates: start: 20160929, end: 20170211
  2. ZYRTEC [Concomitant]
     Active Substance: CETIRIZINE HYDROCHLORIDE
  3. VYVANSE [Concomitant]
     Active Substance: LISDEXAMFETAMINE DIMESYLATE

REACTIONS (11)
  - Crying [None]
  - Abnormal behaviour [None]
  - Petit mal epilepsy [None]
  - Anxiety [None]
  - Paranoia [None]
  - Headache [None]
  - Muscle twitching [None]
  - Neuropsychiatric symptoms [None]
  - Anger [None]
  - Confusional state [None]
  - Abdominal pain [None]

NARRATIVE: CASE EVENT DATE: 20161111
